FAERS Safety Report 26135755 (Version 1)
Quarter: 2025Q4

REPORT INFORMATION
  Report Type: Spontaneous
  Country: EU (occurrence: EU)
  Receive Date: 20251209
  Receipt Date: 20251209
  Transmission Date: 20260117
  Serious: Yes (Hospitalization)
  Sender: PFIZER
  Company Number: None

PATIENT
  Age: 27 Year
  Sex: Female

DRUGS (4)
  1. PIPERACILLIN SODIUM\TAZOBACTAM SODIUM [Suspect]
     Active Substance: PIPERACILLIN SODIUM\TAZOBACTAM SODIUM
     Indication: Perichondritis
     Dosage: 16 G, 1X/DAY
     Route: 042
     Dates: start: 20240126, end: 20240208
  2. AUGMENTIN [Suspect]
     Active Substance: AMOXICILLIN\CLAVULANATE POTASSIUM
     Indication: Perichondritis
     Dosage: UNK
     Route: 048
     Dates: start: 20240121, end: 20240126
  3. CIPROFLOXACIN [Concomitant]
     Active Substance: CIPROFLOXACIN
     Indication: Perichondritis
     Dosage: 750 MG EVERY 12H
     Route: 042
     Dates: start: 20240126, end: 20240217
  4. PRISTINAMYCIN [Concomitant]
     Active Substance: PRISTINAMYCIN
     Indication: Perichondritis
     Dosage: UNK
     Route: 048
     Dates: start: 20240117, end: 20240121

REACTIONS (2)
  - Rash maculo-papular [Recovered/Resolved]
  - Enanthema [Recovered/Resolved]

NARRATIVE: CASE EVENT DATE: 20240208
